FAERS Safety Report 7041278-8 (Version None)
Quarter: 2010Q4

REPORT INFORMATION
  Report Type: 
  Country: None (occurrence: None)
  Receive Date: 20101013
  Receipt Date: 20101005
  Transmission Date: 20110411
  Serious: Yes (Death)
  Sender: FDA-Public Use
  Company Number: PHHY2010MX66971

PATIENT
  Sex: Female

DRUGS (1)
  1. EXFORGE HCT [Suspect]
     Indication: HYPERTENSION
     Dosage: 160/5/12.5 MG (1 TABLET PER DAY)
     Route: 048
     Dates: start: 20100701

REACTIONS (3)
  - BREAST PAIN [None]
  - CARDIAC DISORDER [None]
  - COUGH [None]
